FAERS Safety Report 6651675-8 (Version None)
Quarter: 2010Q1

REPORT INFORMATION
  Report Type: 
  Country: None (occurrence: None)
  Receive Date: 20100309
  Receipt Date: 20091206
  Transmission Date: 20100710
  Serious: No
  Sender: FDA-Public Use
  Company Number: 2009SP040409

PATIENT
  Age: 41 Year
  Sex: Female

DRUGS (4)
  1. SAPHRIS [Suspect]
     Indication: BIPOLAR DISORDER
     Dosage: 10 MG; BID; SL
     Route: 060
     Dates: start: 20091021
  2. LEXAPRO [Concomitant]
  3. LAMICTAL CD [Concomitant]
  4. CEREFOLIN NAC (CEREFOLIN) [Concomitant]

REACTIONS (1)
  - ORAL MUCOSAL EXFOLIATION [None]
